FAERS Safety Report 9359294 (Version 1)
Quarter: 2013Q2

REPORT INFORMATION
  Report Type: Spontaneous
  Country: US (occurrence: US)
  Receive Date: 20130620
  Receipt Date: 20130620
  Transmission Date: 20140414
  Serious: Yes (Other)
  Sender: FDA-Public Use
  Company Number: CHPA2013US010014

PATIENT
  Age: 58 Year
  Sex: Male

DRUGS (2)
  1. EXCEDRIN MIGRAINE [Suspect]
     Indication: MIGRAINE
     Dosage: 2 DF, QD
     Route: 048
  2. BENAZEPRIL SANDOZ [Suspect]
     Indication: HYPERTENSION
     Dosage: 20 MG, UNK

REACTIONS (1)
  - Diabetes mellitus [Not Recovered/Not Resolved]
